FAERS Safety Report 6882105-9 (Version None)
Quarter: 2010Q3

REPORT INFORMATION
  Report Type: 
  Country: None (occurrence: None)
  Receive Date: 20100702
  Receipt Date: 20100202
  Transmission Date: 20110219
  Serious: Yes (Death, Other)
  Sender: FDA-Public Use
  Company Number: 2010018490

PATIENT
  Age: 15 Year
  Sex: Female
  Weight: 59.4 kg

DRUGS (2)
  1. ZOLOFT [Suspect]
     Indication: DEPRESSION
     Dosage: 125 MG, 1X/DAY, ORAL
     Route: 048
     Dates: start: 20090301, end: 20090422
  2. EFFEXOR XR [Suspect]
     Indication: DEPRESSION
     Dosage: 150 MG, 1X/DAY, ORAL
     Route: 048
     Dates: start: 20090422

REACTIONS (1)
  - COMPLETED SUICIDE [None]
